FAERS Safety Report 7139225-3 (Version None)
Quarter: 2010Q4

REPORT INFORMATION
  Report Type: 
  Country: None (occurrence: None)
  Receive Date: 20101206
  Receipt Date: 20101123
  Transmission Date: 20110411
  Serious: Yes (Hospitalization)
  Sender: FDA-Public Use
  Company Number: US-ELI_LILLY_AND_COMPANY-US201010005998

PATIENT
  Sex: Female

DRUGS (8)
  1. FORTEO [Suspect]
     Indication: OSTEOPOROSIS
     Dosage: 20 UG, DAILY (1/D)
     Dates: start: 20090801, end: 20101101
  2. TIZANIDINE [Concomitant]
     Dosage: 40 MG, UNK
  3. SIMVASTATIN [Concomitant]
  4. PROTONIX [Concomitant]
     Dosage: 40 MG, UNK
  5. XANAX [Concomitant]
     Dosage: 0.05 MG, UNK
  6. EFFEXOR [Concomitant]
     Dosage: 75 MG, UNK
  7. ADVAIR [Concomitant]
  8. SPIRIVA [Concomitant]

REACTIONS (5)
  - FALL [None]
  - INTERVERTEBRAL DISC PROTRUSION [None]
  - NERVE COMPRESSION [None]
  - NERVE INJURY [None]
  - SPINAL COMPRESSION FRACTURE [None]
